FAERS Safety Report 9879336 (Version 1)
Quarter: 2014Q1

REPORT INFORMATION
  Report Type: Spontaneous
  Country: CH (occurrence: CH)
  Receive Date: 20140206
  Receipt Date: 20140206
  Transmission Date: 20141002
  Serious: Yes (Hospitalization)
  Sender: FDA-Public Use
  Company Number: PHHY2014CH014092

PATIENT
  Age: 81 Year
  Sex: Female

DRUGS (8)
  1. ALLOPUR [Suspect]
     Dosage: 100 MG, QOD
     Route: 048
     Dates: end: 201312
  2. MARCOUMAR [Interacting]
     Indication: PULMONARY EMBOLISM
     Dosage: 1 DF, PRN
     Route: 048
     Dates: start: 20121228, end: 20131216
  3. CALCIMAGON D3 [Concomitant]
     Dosage: 1 DF, QD
     Route: 048
     Dates: end: 201312
  4. METO ZEROK [Concomitant]
     Dosage: 50 MG, QD
     Route: 048
  5. PANTOPRAZOL [Concomitant]
     Dosage: 40 MG, QD
     Route: 048
  6. SERESTA [Concomitant]
     Dosage: 7.5 MG, QD
     Route: 048
  7. TRIATEC [Concomitant]
     Dosage: 1.25 MG, QD
     Route: 048
  8. TOREM [Concomitant]
     Dosage: 2 DF, QD
     Route: 048

REACTIONS (5)
  - Gastrointestinal haemorrhage [Recovered/Resolved]
  - Melaena [Recovered/Resolved]
  - Renal failure chronic [Recovered/Resolved]
  - Haemoglobin decreased [Recovered/Resolved]
  - Haematochezia [Recovered/Resolved]
